FAERS Safety Report 5120437-5 (Version None)
Quarter: 2006Q4

REPORT INFORMATION
  Report Type: 
  Country: None (occurrence: None)
  Receive Date: 20061002
  Receipt Date: 20060922
  Transmission Date: 20070319
  Serious: Yes (Death, Hospitalization)
  Sender: FDA-Public Use
  Company Number: GXKR2006GB05869

PATIENT
  Age: 79 Year
  Sex: Female
  Weight: 70 kg

DRUGS (13)
  1. OMEPRAZOLE [Suspect]
     Indication: GASTROOESOPHAGEAL REFLUX DISEASE
     Dosage: 20 MG, QD, ORAL
     Route: 048
     Dates: start: 20060421, end: 20060524
  2. ALLOPURINOL [Concomitant]
  3. ANASTROZOLE [Concomitant]
  4. ASPIRIN [Concomitant]
  5. CO-DYDRAMOL (DIHYDROCODEINE BITARTRATE, PARACETAMOL) [Concomitant]
  6. ISOSORBIDE MONONITRATE [Concomitant]
  7. LACTULOSE [Concomitant]
  8. SALBUTAMOL (SALBUTAMOL) [Concomitant]
  9. SERETIDE (FLUTICASONE PROPIONATE, SALMETEROL XINAFOATE) [Concomitant]
  10. SIMVASTATIN [Concomitant]
  11. SPIRONOLACTONE [Concomitant]
  12. TIOTROPIUM BROMIDE (TIOTROPIUM BROMIDE) [Concomitant]
  13. UNIPHYL [Concomitant]

REACTIONS (5)
  - BACK PAIN [None]
  - FEELING HOT [None]
  - INCONTINENCE [None]
  - PALLOR [None]
  - STEVENS-JOHNSON SYNDROME [None]
